FAERS Safety Report 5647887-2 (Version None)
Quarter: 2008Q1

REPORT INFORMATION
  Report Type: 
  Country: None (occurrence: None)
  Receive Date: 20080228
  Receipt Date: 20080218
  Transmission Date: 20080703
  Serious: Yes (Death)
  Sender: FDA-Public Use
  Company Number: 08H-163-0313891-00

PATIENT
  Age: 54 Year
  Sex: Male

DRUGS (6)
  1. METOPROLOL TARTRATE [Suspect]
     Indication: MYOCARDIAL INFARCTION
     Dosage: 2.5 MG, INTRAVENOUS
     Route: 042
  2. COCAINE (COCAINE) [Suspect]
     Dosage: APPROXIMATELY 1 GRAM, INTRA-NASAL
     Route: 045
  3. ASPIRIN [Concomitant]
  4. NITROGLYCERIN [Concomitant]
  5. OXYGEN (OXYGEN) [Concomitant]
  6. DIAZEPAM [Concomitant]

REACTIONS (8)
  - CARDIAC FAILURE CONGESTIVE [None]
  - CIRCULATORY COLLAPSE [None]
  - DRUG INTERACTION [None]
  - DRUG SCREEN POSITIVE [None]
  - DRUG TOXICITY [None]
  - ELECTROMECHANICAL DISSOCIATION [None]
  - MYOCARDIAL INFARCTION [None]
  - SINUS TACHYCARDIA [None]
